FAERS Safety Report 8566739-1 (Version None)
Quarter: 2012Q3

REPORT INFORMATION
  Report Type: 
  Country: None (occurrence: None)
  Receive Date: 20120803
  Receipt Date: 20120725
  Transmission Date: 20120928
  Serious: Yes (Hospitalization)
  Sender: FDA-Public Use
  Company Number: JP-009507513-2012SP025819

PATIENT

DRUGS (35)
  1. ZOLOFT [Concomitant]
     Indication: DEPRESSION
     Dosage: UPDATE (02JUL2012)
     Route: 048
     Dates: start: 20120409
  2. MAGMITT [Concomitant]
     Route: 048
  3. EURAX-H [Concomitant]
     Indication: PRURITUS
     Dosage: UPDATE (02JUL2012): DOSGE: 50GRAMS PER DAY, AS NEEDED
     Route: 061
     Dates: start: 20120312, end: 20120425
  4. ISODINE [Concomitant]
     Indication: OROPHARYNGEAL PAIN
     Dosage: UPDATE (02JUL2012): DOSAGE: DAILY DOSE UNKNOWN, AS NEEDED
     Route: 051
     Dates: start: 20120506
  5. PURSENNID (SENNA) [Concomitant]
     Indication: CONSTIPATION
     Route: 048
     Dates: start: 20120317
  6. PEG-INTRON [Suspect]
     Indication: HEPATITIS C
     Dosage: 1.5MCG/KG/WEEK
     Route: 058
     Dates: start: 20120308, end: 20120404
  7. VOLTAREN [Concomitant]
     Indication: PYREXIA
     Dosage: 25MG/DAY, AS NEEDED
     Route: 051
     Dates: start: 20120420
  8. PEG-INTRON [Suspect]
     Dosage: 1.5MCG/KG/WEEK
     Route: 058
     Dates: start: 20120412
  9. XYZAL [Concomitant]
  10. SENNA-MINT WAF [Concomitant]
     Indication: CONSTIPATION
     Dosage: UPDATE (02JUL2012)
     Route: 048
     Dates: start: 20120317
  11. RABEPRAZOLE SODIUM [Concomitant]
  12. MAGMITT [Concomitant]
     Indication: CONSTIPATION
     Dosage: UPDATE (02JUL2012)
     Route: 048
  13. DOGMATYL [Concomitant]
     Indication: DEPRESSION
     Route: 048
     Dates: start: 20120507
  14. PEG-INTRON [Suspect]
     Dosage: 0.78MCG/KG/WEEK
     Route: 058
     Dates: start: 20120405, end: 20120411
  15. REBETOL [Suspect]
     Indication: HEPATITIS C
     Dosage: 800 MG, QD
     Route: 048
     Dates: start: 20120308, end: 20120418
  16. REBETOL [Suspect]
     Dosage: 600 MG, QD
     Route: 048
     Dates: start: 20120419, end: 20120516
  17. NERISONA [Concomitant]
     Indication: RASH
     Dosage: UNK UNK, UNKNOWN
     Route: 065
     Dates: start: 20120312
  18. TELAVIC [Suspect]
     Indication: HEPATITIS C
     Route: 048
     Dates: start: 20120308
  19. XYZAL [Concomitant]
     Indication: PRURITUS
     Dosage: UPDATE (02JUL2012)
     Route: 048
     Dates: start: 20120314
  20. DEPAS [Concomitant]
     Indication: DEPRESSION
     Dosage: UPDATE (02JUL2012)
     Route: 048
  21. NERISONA [Concomitant]
     Indication: PRURITUS
     Dosage: 50G/DAY, AS NEEDED
     Route: 061
     Dates: start: 20120312, end: 20120425
  22. DICLOFENAC SODIUM [Concomitant]
     Indication: PYREXIA
     Dosage: UPDATE (02JUL2012): FORMULATION: EXT
     Route: 051
     Dates: start: 20120420
  23. MIRTAZAPINE [Concomitant]
     Indication: DEPRESSION
     Route: 048
     Dates: start: 20120416, end: 20120422
  24. ZOLOFT [Concomitant]
     Indication: DEPRESSION
     Route: 048
     Dates: start: 20120409
  25. ANTIVIRAL (UNSPECIFIED) [Suspect]
     Indication: HEPATITIS C
     Dosage: 2250 MG, QD
     Route: 048
     Dates: start: 20120308
  26. RABEPRAZOLE SODIUM [Concomitant]
     Indication: GASTROOESOPHAGEAL REFLUX DISEASE
     Dosage: UPDATE (02JUL2012)
     Route: 048
     Dates: start: 20120319
  27. ALLOPURINOL [Concomitant]
     Indication: HYPERURICAEMIA
     Route: 048
     Dates: start: 20120427
  28. ISODINE [Concomitant]
     Dosage: AS NEEDED
     Route: 051
     Dates: start: 20120506
  29. MUCOSTA [Concomitant]
     Indication: GASTROOESOPHAGEAL REFLUX DISEASE
     Route: 048
     Dates: start: 20120506
  30. REBETOL [Suspect]
     Dosage: 400 MG, QD
     Route: 048
     Dates: start: 20120517
  31. GASMOTIN [Concomitant]
     Indication: DYSPEPSIA
     Dosage: UPDATE (02JUL2012)
     Route: 048
     Dates: start: 20120409
  32. DEPAS [Concomitant]
     Route: 048
  33. LENDORMIN D [Concomitant]
     Indication: DEPRESSION
     Dosage: 0.25MG/DAY, AS NEEDED
     Route: 048
     Dates: start: 20120311, end: 20120316
  34. EURAX-H [Concomitant]
     Dosage: 50G/DAY, AS NEEDED
     Route: 061
     Dates: start: 20120312, end: 20120425
  35. LOXONIN [Concomitant]
     Indication: PYREXIA
     Dosage: 60MG/DAY, AS NEEDED
     Route: 048
     Dates: start: 20120313, end: 20120420

REACTIONS (1)
  - DECREASED APPETITE [None]
